FAERS Safety Report 17247638 (Version 1)
Quarter: 2020Q1

REPORT INFORMATION
  Report Type: Spontaneous
  Country: US (occurrence: US)
  Receive Date: 20200107
  Receipt Date: 20200107
  Transmission Date: 20200409
  Serious: Yes (Other)
  Sender: FDA-Public Use
  Company Number: None

PATIENT
  Age: 6 Year
  Sex: Female
  Weight: 39.15 kg

DRUGS (1)
  1. C HLORHEXIDINE, 2%CHG, 2%CHG WITHOUT ALCOHOL, CHLORHEXIDINE GLUCONATE [Suspect]
     Active Substance: CHLORHEXIDINE
     Indication: INFECTION PROPHYLAXIS
     Route: 061
     Dates: start: 20181206, end: 20181206

REACTIONS (7)
  - Scar [None]
  - Chemical burn [None]
  - Application site pain [None]
  - Hypersensitivity [None]
  - Impaired healing [None]
  - Blister [None]
  - Drug hypersensitivity [None]

NARRATIVE: CASE EVENT DATE: 20181206
